FAERS Safety Report 16840653 (Version 1)
Quarter: 2019Q3

REPORT INFORMATION
  Report Type: Spontaneous
  Country: GB (occurrence: GB)
  Receive Date: 20190923
  Receipt Date: 20190923
  Transmission Date: 20191005
  Serious: Yes (Other)
  Sender: FDA-Public Use
  Company Number: GB-PFIZER INC-2019402905

PATIENT
  Age: 35 Year

DRUGS (4)
  1. BOSUTINIB [Suspect]
     Active Substance: BOSUTINIB
     Indication: CHRONIC MYELOID LEUKAEMIA
     Dosage: 200 MG, DAILY
     Dates: start: 20181115
  2. BOSUTINIB [Suspect]
     Active Substance: BOSUTINIB
     Dosage: 100 MG, 1X/DAY
     Dates: start: 20180910
  3. DASATINIB. [Suspect]
     Active Substance: DASATINIB
     Indication: CHRONIC MYELOID LEUKAEMIA
     Dosage: UNK
     Dates: start: 2012, end: 20180903
  4. DASATINIB. [Suspect]
     Active Substance: DASATINIB
     Dosage: UNK
     Dates: end: 201907

REACTIONS (15)
  - Thrombotic microangiopathy [Unknown]
  - Dizziness [Unknown]
  - Premature menopause [Unknown]
  - Headache [Unknown]
  - Arteriosclerosis coronary artery [Unknown]
  - Drug intolerance [Unknown]
  - Fatigue [Unknown]
  - Pain [Unknown]
  - Hypothyroidism [Unknown]
  - Migraine [Unknown]
  - Glomerular filtration rate decreased [Unknown]
  - Asthma [Unknown]
  - Bone pain [Unknown]
  - Blood creatinine increased [Unknown]
  - Cataract subcapsular [Unknown]

NARRATIVE: CASE EVENT DATE: 201908
